FAERS Safety Report 5693777-9 (Version None)
Quarter: 2008Q2

REPORT INFORMATION
  Report Type: 
  Country: None (occurrence: None)
  Receive Date: 20080403
  Receipt Date: 20080321
  Transmission Date: 20081010
  Serious: Yes (Hospitalization, Other)
  Sender: FDA-Public Use
  Company Number: US-BRISTOL-MYERS SQUIBB COMPANY-14008791

PATIENT
  Age: 54 Year
  Sex: Female

DRUGS (14)
  1. ABATACEPT [Suspect]
     Indication: CROHN'S DISEASE
     Route: 042
     Dates: start: 20071016
  2. PREVACID [Concomitant]
     Indication: GASTROOESOPHAGEAL REFLUX DISEASE
     Dosage: 30 MG QD ON 23APR07-18JUL07, 30 MG BID 18JUL07-23JUL07, 30 MG QD 24JUL07-ONGOING
     Route: 048
     Dates: start: 20070823
  3. FERREX [Concomitant]
     Indication: ANAEMIA
     Dosage: TABS
     Route: 048
     Dates: start: 20070830
  4. TEMAZEPAM [Concomitant]
     Indication: INSOMNIA
     Dosage: 1-2 TABS QHS
     Route: 048
     Dates: start: 20070830
  5. CANASA [Concomitant]
     Indication: RECTAL SPASM
     Route: 054
     Dates: start: 20071113, end: 20071120
  6. PREDNISONE [Concomitant]
     Indication: INFLAMMATORY BOWEL DISEASE
     Dosage: 20 MG BID 29OCT07-05NOV07;30MG QD 04NOV07-20NOV07;25MG QD 21NOV07-01DEC07,20MG QD 02DEC07-ONGOING
     Route: 048
     Dates: start: 20071029
  7. NULEV [Concomitant]
     Indication: ABDOMINAL PAIN
     Route: 048
     Dates: start: 20050901
  8. VAGIFEM [Concomitant]
     Indication: MENOPAUSAL SYMPTOMS
     Dates: start: 20070315
  9. CENTRUM [Concomitant]
     Indication: VITAMIN SUPPLEMENTATION
     Route: 048
     Dates: start: 20000101
  10. IMURAN [Concomitant]
     Indication: INFLAMMATORY BOWEL DISEASE
     Route: 048
     Dates: start: 20060805
  11. COLAZAL [Concomitant]
     Indication: INFLAMMATORY BOWEL DISEASE
     Route: 048
     Dates: start: 20070109
  12. COUMADIN [Concomitant]
     Indication: DEEP VEIN THROMBOSIS
     Route: 048
     Dates: start: 20080128
  13. TRAZODONE HCL [Concomitant]
     Indication: INSOMNIA
     Route: 048
  14. REGLAN [Concomitant]

REACTIONS (2)
  - ANTIPHOSPHOLIPID SYNDROME [None]
  - DEEP VEIN THROMBOSIS [None]
